FAERS Safety Report 16614532 (Version 11)
Quarter: 2025Q3

REPORT INFORMATION
  Report Type: Spontaneous
  Country: US (occurrence: US)
  Receive Date: 20190723
  Receipt Date: 20250714
  Transmission Date: 20251021
  Serious: Yes (Other)
  Sender: PFIZER
  Company Number: US-PFIZER INC-2019310959

PATIENT
  Age: 71 Year
  Sex: Female

DRUGS (3)
  1. EUCRISA [Suspect]
     Active Substance: CRISABOROLE
     Indication: Dermatitis allergic
     Route: 061
  2. EUCRISA [Suspect]
     Active Substance: CRISABOROLE
     Indication: Eczema
     Dosage: 1 DF, 2X/DAY
     Route: 061
  3. EUCRISA [Suspect]
     Active Substance: CRISABOROLE
     Indication: Dermatitis atopic
     Dosage: APPLY TWICE DAILY TO ATOPIC DERMATITIS ON FACE AND HANDS AS DIRECTED BY PHYSICIAN
     Route: 061

REACTIONS (6)
  - Thrombosis [Unknown]
  - Off label use [Unknown]
  - Expired product administered [Unknown]
  - Intentional product misuse [Unknown]
  - Pruritus [Unknown]
  - Psoriasis [Unknown]
